FAERS Safety Report 13485753 (Version 2)
Quarter: 2017Q2

REPORT INFORMATION
  Report Type: Spontaneous
  Country: US (occurrence: US)
  Receive Date: 20170426
  Receipt Date: 20170601
  Transmission Date: 20170830
  Serious: Yes (Hospitalization, Other)
  Sender: FDA-Public Use
  Company Number: US-BTG INTERNATIONAL LTD-BTG01229

PATIENT
  Age: 19 Year
  Sex: Male

DRUGS (6)
  1. CROFAB [Suspect]
     Active Substance: CROTALIDAE POLYVALENT IMMUNE FAB (OVINE)
     Dosage: 4 DF, QD
  2. CROFAB [Suspect]
     Active Substance: CROTALIDAE POLYVALENT IMMUNE FAB (OVINE)
     Indication: SNAKE BITE
     Dosage: 6 DF, UNK
  3. CROFAB [Suspect]
     Active Substance: CROTALIDAE POLYVALENT IMMUNE FAB (OVINE)
     Dosage: 2 DF, TID
  4. CROFAB [Suspect]
     Active Substance: CROTALIDAE POLYVALENT IMMUNE FAB (OVINE)
     Dosage: 2 DF, QD
  5. CROFAB [Suspect]
     Active Substance: CROTALIDAE POLYVALENT IMMUNE FAB (OVINE)
     Dosage: 4 DF, UNK
  6. CROFAB [Suspect]
     Active Substance: CROTALIDAE POLYVALENT IMMUNE FAB (OVINE)
     Dosage: 2 DF, UNK

REACTIONS (7)
  - Condition aggravated [Recovering/Resolving]
  - Contusion [Recovering/Resolving]
  - Drug effect incomplete [Recovering/Resolving]
  - Haematochezia [Recovering/Resolving]
  - Thrombocytopenia [Recovering/Resolving]
  - Coagulopathy [Recovering/Resolving]
  - Petechiae [Recovering/Resolving]
